FAERS Safety Report 10228016 (Version 1)
Quarter: 2014Q2

REPORT INFORMATION
  Report Type: Spontaneous
  Country: US (occurrence: None)
  Receive Date: 20140609
  Receipt Date: 20140609
  Transmission Date: 20141212
  Serious: Yes (Life-Threatening, Hospitalization, Disabling)
  Sender: FDA-Public Use
  Company Number: None

PATIENT
  Age: 25 Year
  Sex: Female
  Weight: 65.77 kg

DRUGS (1)
  1. NUVARING [Suspect]
     Dosage: 1 RING 1 MONTHS VAGINAL
     Route: 067
     Dates: start: 20140420

REACTIONS (3)
  - Hypoaesthesia [None]
  - Paraesthesia [None]
  - Discomfort [None]
